FAERS Safety Report 6106533-4 (Version None)
Quarter: 2009Q1

REPORT INFORMATION
  Report Type: 
  Country: None (occurrence: None)
  Receive Date: 20090304
  Receipt Date: 20090217
  Transmission Date: 20090719
  Serious: Yes (Other)
  Sender: FDA-Public Use
  Company Number: 8043145

PATIENT
  Age: 31 Year
  Sex: Female

DRUGS (4)
  1. KEPPRA [Suspect]
     Indication: EPILEPSY
     Dosage: 1000 MG /D
     Dates: start: 20030101
  2. LAMICTAL [Concomitant]
  3. VITAMIN TAB [Concomitant]
  4. FOLIC ACID [Concomitant]

REACTIONS (2)
  - ABORTION SPONTANEOUS [None]
  - MATERNAL DRUGS AFFECTING FOETUS [None]
